FAERS Safety Report 6931529-X (Version None)
Quarter: 2010Q3

REPORT INFORMATION
  Report Type: 
  Country: None (occurrence: None)
  Receive Date: 20100816
  Receipt Date: 20100802
  Transmission Date: 20110219
  Serious: Yes (Hospitalization, Other)
  Sender: FDA-Public Use
  Company Number: DSU-2010-03880

PATIENT
  Age: 73 Year
  Sex: Male

DRUGS (32)
  1. BENICAR [Suspect]
     Indication: HYPERTENSION
     Dosage: 20 MG (20  MG,QD), PER ORAL
     Route: 048
     Dates: start: 20071001, end: 20100530
  2. PIRFENIDONE [Suspect]
     Indication: IDIOPATHIC PULMONARY FIBROSIS
     Dosage: 2403 MG (2403 MG, QD),
     Dates: end: 20080910
  3. PIRFENIDONE [Suspect]
     Indication: IDIOPATHIC PULMONARY FIBROSIS
     Dosage: 2403 MG (2403 MG, QD),
     Dates: start: 20081007, end: 20100408
  4. CORDARONE [Suspect]
     Indication: VENTRICULAR TACHYCARDIA
     Dosage: 600 MG (200 MG, TID), PER ORAL,   400 MG (200 MG, BID), PER ORAL
     Route: 048
     Dates: start: 20100519, end: 20100528
  5. CORDARONE [Suspect]
     Indication: VENTRICULAR TACHYCARDIA
     Dosage: 600 MG (200 MG, TID), PER ORAL,   400 MG (200 MG, BID), PER ORAL
     Route: 048
     Dates: start: 20100529, end: 20100602
  6. DEMADEX [Suspect]
     Indication: HYPERTENSION
     Dosage: 10 MG (10  MG, QD), PER ORAL
     Route: 048
     Dates: start: 20050101, end: 20100530
  7. CLARITIN (GLICLAZIDE) (GLICLAZIDE) [Concomitant]
  8. SYNTHROID (LEVOTHYROXINE SODIUM) (LEVOTHYROXINE SODIUM) [Concomitant]
  9. VITAMIN B12 (CYANOCOBALAMIN) (CYANOCOBALAMIN) [Concomitant]
  10. TYLENOL (PARACETAMOL) (PARACETAMOL) [Concomitant]
  11. FLUOCINONIDE (FLUOCINONIDE) (CREAM)(FLUOCINONIDE) [Concomitant]
  12. FEXOFENADINE (FEXOFENADINE) (FEXOFENADINE) [Concomitant]
  13. HYDROMORPHONE (HYDROMORPHONE) (HYDROMORPHONE) [Concomitant]
  14. PRILOSEC (ESOMEPRAZOLE) (ESOMEPRAZOLE) [Concomitant]
  15. HYDROCODONE (HYDROCODONE) (HYDROCODONE) [Concomitant]
  16. MUCINEX (GUAIFENESIN)(GUAIFENESIN) [Concomitant]
  17. GAS-X (SIMETICONE, SILICON DIOXIDE) (SIMETICONE, SILICON DIOXIDE) [Concomitant]
  18. MYLANTA (MAGNESIUM HYDROXIDE, ALUMINIUM HYDROXIDE GEL, DRIED, SIMETICO [Concomitant]
  19. IPRATROPIUM BROMIDE (IPRATROPIUM BROMIDE) (NASAL SPRAY) (IPRATROPIUM B [Concomitant]
  20. SKELAXIN (METAXALONE) (METAXALONE) [Concomitant]
  21. SUCRALFATE ( SUCRALFATE ) (SUCRALFATE) [Concomitant]
  22. MIRALAX (MACROGOL)(MACROGOL) [Concomitant]
  23. LEVAQUIN (LEVOFLOXACIN) (LEVOFLOXACIN) [Concomitant]
  24. LOPRESSOR (METOPROLOL TARTRATE) (METOPROLOL TARTRATE) [Concomitant]
  25. FLAGYL (METRONIDAZOLE) (METRONIDAZOLE) [Concomitant]
  26. ATIVAN [Concomitant]
  27. DARVOCET-N (PARACETAMOL, DEXTROPROPDXYPHENE NAPSILATE) (PARACETAMOL, D [Concomitant]
  28. ALBUTEROL (SALBUTAMOL) (SALBUTAMOL) [Concomitant]
  29. PROTONIX [Concomitant]
  30. SLIDING SCALE INSULIN(INSULIN) (INSULIN) [Concomitant]
  31. COSYNTROPIN (TETRACOSACTIDE) (TETRACOSACTIDE) [Concomitant]
  32. LEVOTHROID (LEVOTHYROXINE SODIUM) (LEVOTHYROXINE SODIUM) [Concomitant]

REACTIONS (12)
  - DIVERTICULITIS [None]
  - ELECTROCARDIOGRAM QT PROLONGED [None]
  - FAECAL INCONTINENCE [None]
  - MYOCARDIAL INFARCTION [None]
  - NON-SMALL CELL LUNG CANCER METASTATIC [None]
  - PERICARDIAL EFFUSION [None]
  - PNEUMOMEDIASTINUM [None]
  - PNEUMONIA [None]
  - QRS AXIS ABNORMAL [None]
  - SYNCOPE [None]
  - URINARY INCONTINENCE [None]
  - VENTRICULAR EXTRASYSTOLES [None]
